FAERS Safety Report 7919973-5 (Version None)
Quarter: 2011Q4

REPORT INFORMATION
  Report Type: 
  Country: None (occurrence: None)
  Receive Date: 20111115
  Receipt Date: 20111109
  Transmission Date: 20120403
  Serious: Yes (Death)
  Sender: FDA-Public Use
  Company Number: DSA_48145_2011

PATIENT
  Sex: Male

DRUGS (7)
  1. TRAZODONE HCL [Concomitant]
  2. XENAZINE [Suspect]
     Indication: PRODUCT USED FOR UNKNOWN INDICATION
     Dosage: (25 MG BID ORAL)
     Route: 048
  3. FLONASE [Concomitant]
  4. REMERON [Concomitant]
  5. TRAMADOL HCL [Concomitant]
  6. SEROQUEL [Concomitant]
  7. DEPAXOTE [Concomitant]

REACTIONS (1)
  - DEATH [None]
